FAERS Safety Report 8205945 (Version 4)
Quarter: 2014Q3

REPORT INFORMATION
  Report Type: Report from Study
  Country: US (occurrence: US)
  Receive Date: 20111028
  Receipt Date: 20140731
  Transmission Date: 20150326
  Serious: Yes (Other)
  Sender: FDA-Public Use
  Company Number: US-ELI_LILLY_AND_COMPANY-US201110004773

PATIENT
  Age: 70 Year
  Sex: Female

DRUGS (4)
  1. DILAUDID [Concomitant]
     Active Substance: HYDROMORPHONE HYDROCHLORIDE
     Indication: NECK PAIN
  2. DULOXETINE HYDROCHLORIDE. [Suspect]
     Active Substance: DULOXETINE HYDROCHLORIDE
     Indication: CARPAL TUNNEL SYNDROME
     Dosage: 60 MG, QD
     Route: 065
  3. LANTUS [Concomitant]
     Active Substance: INSULIN GLARGINE
     Indication: DIABETES MELLITUS
     Dosage: 55 ML, QD
  4. DULOXETINE HYDROCHLORIDE. [Suspect]
     Active Substance: DULOXETINE HYDROCHLORIDE
     Indication: ARTHRITIS
     Dosage: UNK UNK, QD
     Route: 065

REACTIONS (7)
  - Cataract [Not Recovered/Not Resolved]
  - Nervousness [Not Recovered/Not Resolved]
  - Eye disorder [Not Recovered/Not Resolved]
  - Nodule [Not Recovered/Not Resolved]
  - Blood glucose increased [Unknown]
  - Skin ulcer [Recovering/Resolving]
  - Nail infection [Recovering/Resolving]

NARRATIVE: CASE EVENT DATE: 201407
